FAERS Safety Report 9149625 (Version 1)
Quarter: 2013Q1

REPORT INFORMATION
  Report Type: Spontaneous
  Country: DZ (occurrence: DZ)
  Receive Date: 20130308
  Receipt Date: 20130308
  Transmission Date: 20140127
  Serious: Yes (Death)
  Sender: FDA-Public Use
  Company Number: DZ-PFIZER INC-2005004042

PATIENT
  Age: 55 Year
  Sex: Female

DRUGS (3)
  1. CELEBREX [Suspect]
     Indication: OSTEOARTHRITIS
     Dosage: BID
     Route: 048
     Dates: start: 2000
  2. LUTENYL [Concomitant]
  3. APRANAX [Concomitant]
     Route: 065

REACTIONS (3)
  - Death [Fatal]
  - Dry mouth [Unknown]
  - Hypothermia [Unknown]
